FAERS Safety Report 9365346 (Version 2)
Quarter: 2016Q1

REPORT INFORMATION
  Report Type: Report from Study
  Country: US (occurrence: US)
  Receive Date: 20130625
  Receipt Date: 20160304
  Transmission Date: 20160526
  Serious: Yes (Other)
  Sender: FDA-Public Use
  Company Number: US-ROCHE-1239639

PATIENT
  Sex: Male

DRUGS (6)
  1. COPEGUS [Suspect]
     Active Substance: RIBAVIRIN
     Dosage: 400 MG IN AM AND 600MG IN PM
     Route: 048
  2. TELAPREVIR [Suspect]
     Active Substance: TELAPREVIR
     Indication: HEPATITIS C
     Route: 065
     Dates: end: 20130610
  3. PEGASYS [Suspect]
     Active Substance: PEGINTERFERON ALFA-2A
     Indication: CHRONIC HEPATITIS C
     Route: 058
     Dates: start: 20130610
  4. PEGASYS [Suspect]
     Active Substance: PEGINTERFERON ALFA-2A
     Route: 058
  5. COPEGUS [Suspect]
     Active Substance: RIBAVIRIN
     Indication: HEPATITIS C
     Route: 048
     Dates: start: 20130610
  6. COPEGUS [Suspect]
     Active Substance: RIBAVIRIN
     Dosage: PER WEEK
     Route: 048

REACTIONS (9)
  - Proctalgia [Unknown]
  - Rectal haemorrhage [Unknown]
  - Hypoaesthesia [Unknown]
  - Injection site erythema [Unknown]
  - Rash [Unknown]
  - Pruritus [Unknown]
  - Anorectal discomfort [Unknown]
  - Haemorrhoids [Unknown]
  - Injection site pruritus [Unknown]
